FAERS Safety Report 4882180-7 (Version None)
Quarter: 2006Q1

REPORT INFORMATION
  Report Type: 
  Country: None (occurrence: None)
  Receive Date: 20060117
  Receipt Date: 20051220
  Transmission Date: 20060701
  Serious: Yes (Hospitalization, Other)
  Sender: FDA-Public Use
  Company Number: US-MERCK-0512USA03325

PATIENT
  Age: 57 Year
  Sex: Male
  Weight: 114 kg

DRUGS (2)
  1. VIOXX [Suspect]
     Indication: ARTHRITIS
     Route: 048
     Dates: start: 20020301, end: 20030301
  2. VIOXX [Suspect]
     Route: 048
     Dates: start: 20020301, end: 20030301

REACTIONS (10)
  - CEREBROVASCULAR ACCIDENT [None]
  - CHEST DISCOMFORT [None]
  - DEEP VEIN THROMBOSIS [None]
  - DYSPNOEA [None]
  - HYPERTENSION [None]
  - INFARCTION [None]
  - INTRACRANIAL HAEMANGIOMA [None]
  - OCCULT BLOOD POSITIVE [None]
  - REVERSIBLE ISCHAEMIC NEUROLOGICAL DEFICIT [None]
  - RHINITIS ALLERGIC [None]
